FAERS Safety Report 6768986-8 (Version None)
Quarter: 2010Q2

REPORT INFORMATION
  Report Type: 
  Country: None (occurrence: None)
  Receive Date: 20100615
  Receipt Date: 20100603
  Transmission Date: 20101027
  Serious: No
  Sender: FDA-Public Use
  Company Number: US-BIOGENIDEC-2010BI018575

PATIENT
  Sex: Female

DRUGS (4)
  1. TYSABRI [Suspect]
     Indication: MULTIPLE SCLEROSIS
     Route: 042
     Dates: start: 20070503, end: 20080801
  2. TYSABRI [Suspect]
     Route: 042
     Dates: start: 20090801
  3. LUNESTA [Concomitant]
     Indication: INSOMNIA
  4. CYMBALTA [Concomitant]
     Indication: DEPRESSION

REACTIONS (4)
  - FATIGUE [None]
  - HEADACHE [None]
  - MULTIPLE SCLEROSIS RELAPSE [None]
  - POOR QUALITY SLEEP [None]
